FAERS Safety Report 4335970-3 (Version None)
Quarter: 2004Q2

REPORT INFORMATION
  Report Type: 
  Country: None (occurrence: None)
  Receive Date: 20040406
  Receipt Date: 20040326
  Transmission Date: 20050107
  Serious: Yes (Disabling)
  Sender: FDA-Public Use
  Company Number: 2003PK01177

PATIENT
  Age: 65 Year
  Sex: Male

DRUGS (14)
  1. IRESSA [Suspect]
     Indication: COLORECTAL CANCER
     Dosage: 250 MG DAILY; PO
     Route: 048
     Dates: start: 20030606, end: 20030627
  2. IRINOTECAN [Suspect]
     Indication: COLORECTAL CANCER
     Dosage: 400 MG; IV
     Route: 042
     Dates: start: 20030606, end: 20030606
  3. RANITIDINE [Concomitant]
  4. TRIAMETERENE AND HYDROCHLOROTHIAZIDE [Concomitant]
  5. EUGALAC [Concomitant]
  6. LOPERAMIDE HCL [Concomitant]
  7. DICLOFENAC SODIUM [Concomitant]
  8. NOVALGIN [Concomitant]
  9. DURAGESIC [Concomitant]
  10. SEVREDOL [Concomitant]
  11. VOMEX [Concomitant]
  12. ZOFRAN [Concomitant]
  13. FORTECORTIN [Concomitant]
  14. ATROPINE [Concomitant]

REACTIONS (2)
  - CLOSTRIDIUM COLITIS [None]
  - FATIGUE [None]
